FAERS Safety Report 9190166 (Version 1)
Quarter: 2013Q1

REPORT INFORMATION
  Report Type: Spontaneous
  Country: US (occurrence: None)
  Receive Date: 20120703
  Receipt Date: 20120703
  Transmission Date: 20140127
  Serious: No
  Sender: FDA-Public Use
  Company Number: PHEH2012US007695

PATIENT
  Age: 34 Year
  Sex: Female
  Weight: 59.9 kg

DRUGS (1)
  1. GILENYA (FTY) CAPSULE [Suspect]
     Route: 048
     Dates: start: 20111228

REACTIONS (2)
  - Asthenia [None]
  - Fatigue [None]
